FAERS Safety Report 19727232 (Version 1)
Quarter: 2021Q3

REPORT INFORMATION
  Report Type: Spontaneous
  Country: IT (occurrence: IT)
  Receive Date: 20210819
  Receipt Date: 20210819
  Transmission Date: 20211014
  Serious: Yes (Hospitalization)
  Sender: FDA-Public Use
  Company Number: NVSC2021IT186265

PATIENT
  Age: 15 Year
  Sex: Female
  Weight: 65 kg

DRUGS (1)
  1. PARACETAMOL [Suspect]
     Active Substance: ACETAMINOPHEN
     Indication: DRUG ABUSE
     Dosage: 5 G, TOTAL
     Route: 048
     Dates: start: 20210710, end: 20210710

REACTIONS (3)
  - Suicide attempt [Recovering/Resolving]
  - Intentional self-injury [Recovering/Resolving]
  - Nausea [Recovering/Resolving]

NARRATIVE: CASE EVENT DATE: 20210710
